FAERS Safety Report 14518327 (Version 1)
Quarter: 2018Q1

REPORT INFORMATION
  Report Type: Spontaneous
  Country: US (occurrence: US)
  Receive Date: 20180209
  Receipt Date: 20180209
  Transmission Date: 20180509
  Serious: No
  Sender: FDA-Public Use
  Company Number: None

PATIENT
  Age: 67 Year
  Sex: Female

DRUGS (1)
  1. EPCLUSA [Suspect]
     Active Substance: SOFOSBUVIR\VELPATASVIR
     Indication: HEPATITIS VIRAL
     Dosage: 400/100MG DAILY BY MOUTH
     Route: 048
     Dates: start: 20180123

REACTIONS (4)
  - Fatigue [None]
  - Headache [None]
  - Decreased appetite [None]
  - Insomnia [None]

NARRATIVE: CASE EVENT DATE: 20180124
